FAERS Safety Report 21530164 (Version 2)
Quarter: 2022Q4

REPORT INFORMATION
  Report Type: Report from Study
  Country: US (occurrence: US)
  Receive Date: 20221031
  Receipt Date: 20221202
  Transmission Date: 20230112
  Serious: No
  Sender: FDA-Public Use
  Company Number: US-ABBVIE-4147901

PATIENT
  Sex: Female

DRUGS (1)
  1. HUMIRA [Suspect]
     Active Substance: ADALIMUMAB
     Indication: Rheumatoid arthritis
     Dosage: CITRATE FREE?THE EVENT ONSET DATE AND CESSATION DATE FOR ADVERSE EVENTS POST NASAL DRIP, NAUSEA, ...
     Route: 058

REACTIONS (5)
  - Nausea [Recovered/Resolved]
  - Upper-airway cough syndrome [Recovered/Resolved]
  - Headache [Recovered/Resolved]
  - Nausea [Unknown]
  - Vomiting [Unknown]
